FAERS Safety Report 7257033-X (Version None)
Quarter: 2011Q1

REPORT INFORMATION
  Report Type: 
  Country: None (occurrence: None)
  Receive Date: 20110129
  Receipt Date: 20100622
  Transmission Date: 20110831
  Serious: No
  Sender: FDA-Public Use
  Company Number: US-ABBOTT-10P-163-0653777-00

PATIENT
  Age: 32 Year
  Sex: Female

DRUGS (3)
  1. HUMIRA [Suspect]
     Indication: PSORIASIS
     Route: 058
     Dates: start: 20100401
  2. ACCUTANE [Suspect]
     Indication: ACNE
     Dates: end: 20100601
  3. WELLBUTRIN [Concomitant]
     Indication: DEPRESSION

REACTIONS (1)
  - ALOPECIA [None]
